FAERS Safety Report 4520594-5 (Version None)
Quarter: 2004Q4

REPORT INFORMATION
  Report Type: 
  Country: None (occurrence: None)
  Receive Date: 20041203
  Receipt Date: 20041124
  Transmission Date: 20050328
  Serious: Yes (Other)
  Sender: FDA-Public Use
  Company Number: 2004-07-1547

PATIENT
  Age: 72 Year
  Sex: Female
  Weight: 83.9154 kg

DRUGS (9)
  1. ALBUTEROL [Suspect]
     Indication: EMPHYSEMA
     Dosage: AS NEEDED ORAL AER INH
     Route: 048
     Dates: start: 20010101
  2. SERVENT INHALATION AEROSOL [Concomitant]
  3. PREDNISONE TAB [Concomitant]
  4. MONOPRIL [Concomitant]
  5. WARFARIN SODIUM [Concomitant]
  6. CARDIZEM [Concomitant]
  7. SYNTHROID [Concomitant]
  8. COUMADIN [Concomitant]
  9. EFFEXOR [Concomitant]

REACTIONS (8)
  - ACCIDENT [None]
  - GINGIVAL DISORDER [None]
  - INJURY [None]
  - MOUTH INJURY [None]
  - PHARMACEUTICAL PRODUCT COMPLAINT [None]
  - TOOTH DISORDER [None]
  - TOOTH LOSS [None]
  - TOOTHACHE [None]
